FAERS Safety Report 18399015 (Version 2)
Quarter: 2020Q4

REPORT INFORMATION
  Report Type: Spontaneous
  Country: CH (occurrence: CH)
  Receive Date: 20201019
  Receipt Date: 20201023
  Transmission Date: 20210114
  Serious: Yes (Death)
  Sender: FDA-Public Use
  Company Number: CH-EXELIXIS-CABO-20033931

PATIENT
  Sex: Male

DRUGS (3)
  1. KEYTRUDA [Suspect]
     Active Substance: PEMBROLIZUMAB
     Indication: PAPILLARY RENAL CELL CARCINOMA
     Dosage: UNK
  2. CABOMETYX [Suspect]
     Active Substance: CABOZANTINIB S-MALATE
     Dosage: 40 MG (BREAK EVERY THIRD DAY)
     Dates: end: 202007
  3. CABOMETYX [Suspect]
     Active Substance: CABOZANTINIB S-MALATE
     Indication: PAPILLARY RENAL CELL CARCINOMA
     Dosage: UNK
     Dates: start: 201909

REACTIONS (4)
  - Skin toxicity [Unknown]
  - Malignant neoplasm progression [Unknown]
  - Death [Fatal]
  - Inappropriate schedule of product administration [Unknown]
